FAERS Safety Report 7345086-X (Version None)
Quarter: 2011Q1

REPORT INFORMATION
  Report Type: 
  Country: None (occurrence: None)
  Receive Date: 20110310
  Receipt Date: 20110301
  Transmission Date: 20110831
  Serious: Yes (Other)
  Sender: FDA-Public Use
  Company Number: FR-TEVA-270220ISR

PATIENT
  Sex: Female

DRUGS (6)
  1. ACETYLSALICYLATE LYSINE [Concomitant]
     Indication: PERICARDITIS
     Dates: start: 20100101
  2. PAROXETINE [Suspect]
     Route: 048
     Dates: start: 20101224, end: 20110201
  3. PAROXETINE [Suspect]
     Indication: POSTPARTUM DEPRESSION
     Route: 048
     Dates: start: 20100401, end: 20101101
  4. BROMAZEPAM [Concomitant]
     Indication: POSTPARTUM DEPRESSION
     Dosage: A QUARTER DOSAGE FORM
     Dates: end: 20110110
  5. DIANE [Concomitant]
     Indication: ACNE
     Dosage: 35 MICROGRAM
     Dates: start: 20110201
  6. PAROXETINE [Suspect]
     Dates: start: 20110201

REACTIONS (4)
  - DYSPNOEA [None]
  - SENSE OF OPPRESSION [None]
  - FATIGUE [None]
  - PERICARDITIS [None]
